FAERS Safety Report 17022975 (Version 2)
Quarter: 2019Q4

REPORT INFORMATION
  Report Type: Spontaneous
  Country: US (occurrence: US)
  Receive Date: 20191112
  Receipt Date: 20191211
  Transmission Date: 20200122
  Serious: Yes (Hospitalization)
  Sender: FDA-Public Use
  Company Number: US-TEVA-2019-US-1135252

PATIENT
  Age: 72 Year
  Sex: Female

DRUGS (1)
  1. WARFARIN [Suspect]
     Active Substance: WARFARIN
     Indication: PULMONARY EMBOLISM
     Route: 048

REACTIONS (4)
  - Cerebral amyloid angiopathy [Unknown]
  - Haemorrhage intracranial [Unknown]
  - Vasogenic cerebral oedema [Unknown]
  - Cerebral haematoma [Unknown]
